FAERS Safety Report 21959501 (Version 1)
Quarter: 2023Q1

REPORT INFORMATION
  Report Type: Spontaneous
  Country: US (occurrence: None)
  Receive Date: 20230203
  Receipt Date: 20230203
  Transmission Date: 20230418
  Serious: No
  Sender: FDA-Public Use
  Company Number: None

PATIENT
  Sex: Female
  Weight: 106.14 kg

DRUGS (11)
  1. VERZENIO [Suspect]
     Active Substance: ABEMACICLIB
     Indication: Breast cancer female
     Dosage: FREQUENCY : TWICE A DAY;?
     Route: 048
     Dates: start: 20220910
  2. ANASTROZOLE [Concomitant]
  3. ASPIRIN [Concomitant]
     Active Substance: ASPIRIN
  4. ATORVASTATIN [Concomitant]
  5. CARVEDILOL [Concomitant]
  6. ENTRESTO [Concomitant]
  7. FARXIGA [Concomitant]
  8. LASIX [Concomitant]
  9. MELOXICAM [Concomitant]
  10. SEMGLEE [Concomitant]
  11. SPIRONOLACTONE [Concomitant]

REACTIONS (1)
  - Limb operation [None]
